FAERS Safety Report 6718287-9 (Version None)
Quarter: 2010Q2

REPORT INFORMATION
  Report Type: 
  Country: None (occurrence: None)
  Receive Date: 20100510
  Receipt Date: 20100428
  Transmission Date: 20101027
  Serious: Yes (Other)
  Sender: FDA-Public Use
  Company Number: GB-TEVA-233771ISR

PATIENT
  Age: 77 Year
  Sex: Male

DRUGS (3)
  1. METHOTREXATE [Suspect]
     Indication: PLASMACYTOSIS
  2. BETAMETHASONE [Suspect]
     Indication: PLASMACYTOSIS
  3. TACROLIMUS [Suspect]
     Indication: PLASMACYTOSIS

REACTIONS (2)
  - LIP NEOPLASM MALIGNANT STAGE UNSPECIFIED [None]
  - METASTASIS [None]
